FAERS Safety Report 17718809 (Version 1)
Quarter: 2020Q2

REPORT INFORMATION
  Report Type: Spontaneous
  Country: DE (occurrence: DE)
  Receive Date: 20200428
  Receipt Date: 20200428
  Transmission Date: 20200714
  Serious: Yes (Death, Life-Threatening)
  Sender: FDA-Public Use
  Company Number: DE-PFIZER INC-2020169163

PATIENT
  Age: 84 Year
  Sex: Female

DRUGS (2)
  1. LETROZOLE. [Suspect]
     Active Substance: LETROZOLE
     Indication: METASTASES TO BONE
     Dosage: UNK
     Route: 065
     Dates: start: 201904
  2. IBRANCE [Suspect]
     Active Substance: PALBOCICLIB
     Indication: METASTATIC NEOPLASM
     Dosage: 125 MG (1.5 CYCLES)
     Route: 065
     Dates: start: 2019

REACTIONS (2)
  - Neoplasm progression [Fatal]
  - Thrombocytopenia [Fatal]

NARRATIVE: CASE EVENT DATE: 20200312
